FAERS Safety Report 15733269 (Version 1)
Quarter: 2018Q4

REPORT INFORMATION
  Report Type: Spontaneous
  Country: US (occurrence: US)
  Receive Date: 20181218
  Receipt Date: 20181218
  Transmission Date: 20190205
  Serious: No
  Sender: FDA-Public Use
  Company Number: US-DRREDDYS-USA/USA/18/0095623

PATIENT
  Age: 21 Year
  Sex: Male
  Weight: 61.4 kg

DRUGS (1)
  1. NICOTINE. [Suspect]
     Active Substance: NICOTINE
     Indication: SMOKING CESSATION THERAPY
     Route: 062

REACTIONS (3)
  - Irritability [Unknown]
  - Nicotine dependence [Not Recovered/Not Resolved]
  - Frustration tolerance decreased [Unknown]
